FAERS Safety Report 21210223 (Version 1)
Quarter: 2022Q3

REPORT INFORMATION
  Report Type: Spontaneous
  Country: US (occurrence: US)
  Receive Date: 20220814
  Receipt Date: 20220814
  Transmission Date: 20221027
  Serious: Yes (Hospitalization, Other)
  Sender: FDA-Public Use
  Company Number: US-NOVARTISPH-NVSC2022US182754

PATIENT
  Age: 75 Year
  Sex: Male

DRUGS (2)
  1. METHYLPREDNISOLONE [Suspect]
     Active Substance: METHYLPREDNISOLONE
     Indication: Back pain
     Dosage: 40 MG (LEFT L2-L3 TFESI WITH PARTICULATE METHYLPREDNISOLONE)
     Route: 008
  2. BUPIVACAINE [Concomitant]
     Active Substance: BUPIVACAINE
     Indication: Product used for unknown indication
     Dosage: 1 ML OF 0.25 PERCENT
     Route: 008

REACTIONS (2)
  - Spinal cord infarction [Not Recovered/Not Resolved]
  - Product use in unapproved indication [Unknown]
